FAERS Safety Report 20546814 (Version 1)
Quarter: 2022Q1

REPORT INFORMATION
  Report Type: Other
  Country: AM (occurrence: None)
  Receive Date: 20220303
  Receipt Date: 20220303
  Transmission Date: 20220423
  Serious: Yes (Death, Other)
  Sender: FDA-Public Use
  Company Number: AM-ROCHE-3038172

PATIENT
  Age: 60 Year
  Sex: Female

DRUGS (3)
  1. RITUXIMAB [Suspect]
     Active Substance: RITUXIMAB
     Indication: Lymphocytic lymphoma
     Route: 065
  2. FLUDARABINE [Suspect]
     Active Substance: FLUDARABINE PHOSPHATE
     Indication: Lymphocytic lymphoma
     Route: 065
  3. CYCLOPHOSPHAMIDE [Suspect]
     Active Substance: CYCLOPHOSPHAMIDE
     Indication: Lymphocytic lymphoma
     Route: 065

REACTIONS (5)
  - Acute respiratory distress syndrome [Fatal]
  - Cardiac failure [Fatal]
  - COVID-19 pneumonia [Unknown]
  - Pneumonia streptococcal [Unknown]
  - Candida infection [Unknown]
